FAERS Safety Report 8025714-6 (Version None)
Quarter: 2012Q1

REPORT INFORMATION
  Report Type: 
  Country: None (occurrence: None)
  Receive Date: 20120105
  Receipt Date: 20110224
  Transmission Date: 20120608
  Serious: No
  Sender: FDA-Public Use
  Company Number: US-ABBOTT-10P-163-0679773-00

PATIENT
  Sex: Female
  Weight: 45.4 kg

DRUGS (4)
  1. SYNTHROID [Suspect]
     Dates: start: 20110101
  2. SYNTHROID [Suspect]
     Indication: HYPOTHYROIDISM
     Dosage: UNKNOWN ADJUSTED DOSES, BUT THEY WERE GRADUAL.
     Dates: start: 20000101
  3. SYNTHROID [Suspect]
     Dosage: ADJUSTED MANY TIMES TO MANY DIFFERENT DOSES DUE TO ABNORMAL TSH LEVELS.
     Route: 048
  4. SYNTHROID [Suspect]
     Dosage: ONE AND ONE-HALF OF 50MCG, TOTAL 75MCG
     Route: 048

REACTIONS (8)
  - THYROID FUNCTION TEST ABNORMAL [None]
  - RASH PAPULAR [None]
  - PRURITUS [None]
  - OROPHARYNGEAL DISCOMFORT [None]
  - PHARYNGEAL OEDEMA [None]
  - ACNE [None]
  - PRURITUS GENERALISED [None]
  - WEIGHT DECREASED [None]
